FAERS Safety Report 4597513-9 (Version None)
Quarter: 2005Q1

REPORT INFORMATION
  Report Type: 
  Country: None (occurrence: None)
  Receive Date: 20050303
  Receipt Date: 20050223
  Transmission Date: 20050727
  Serious: Yes (Other)
  Sender: FDA-Public Use
  Company Number: PHBS2005BE02993

PATIENT
  Age: 71 Year
  Sex: Male

DRUGS (19)
  1. VINCRISTINE + ADRIAMYCIN + DEXAMETHASONE [Concomitant]
     Dosage: 6 CYCLES
     Dates: start: 20030101, end: 20030101
  2. CYCLOPHOSPHAMIDE [Concomitant]
     Route: 065
     Dates: start: 20040801
  3. BORTEZOMIB [Concomitant]
     Route: 065
     Dates: start: 20040901
  4. VINCRISTINE [Concomitant]
     Route: 065
     Dates: start: 20041201, end: 20050101
  5. EPIRUBICIN [Concomitant]
     Route: 065
     Dates: start: 20041201, end: 20050101
  6. DEXAMETHASONE [Concomitant]
     Dosage: PULSE THERAPY
     Route: 065
     Dates: start: 20040701, end: 20040701
  7. DEXAMETHASONE [Concomitant]
     Route: 065
     Dates: start: 20041201, end: 20050101
  8. FOLIC ACID [Concomitant]
     Route: 065
  9. NOOTROPIL [Concomitant]
     Route: 065
  10. EMCONCOR [Concomitant]
     Route: 065
  11. ASPIRIN [Concomitant]
     Route: 065
  12. RABEPRAZOLE SODIUM [Concomitant]
     Route: 065
  13. BURINEX [Concomitant]
     Route: 065
  14. TUSSIPECT [Concomitant]
     Route: 065
  15. THEBACON [Concomitant]
     Route: 065
  16. DUOVENT [Concomitant]
     Route: 065
  17. ARANESP [Concomitant]
     Route: 065
  18. ARANESP [Concomitant]
     Route: 065
  19. ZOMETA [Suspect]
     Indication: MULTIPLE MYELOMA
     Route: 042
     Dates: start: 20020901, end: 20041201

REACTIONS (2)
  - OSTEONECROSIS [None]
  - TOOTH EXTRACTION [None]
